FAERS Safety Report 9004568 (Version 3)
Quarter: 2013Q4

REPORT INFORMATION
  Report Type: Spontaneous
  Country: FR (occurrence: FR)
  Receive Date: 20130108
  Receipt Date: 20131212
  Transmission Date: 20140711
  Serious: Yes (Life-Threatening, Hospitalization, Disabling, Other)
  Sender: FDA-Public Use
  Company Number: FR-ROCHE-1136978

PATIENT
  Age: 60 Year
  Sex: Female
  Weight: 54 kg

DRUGS (15)
  1. ROACTEMRA [Suspect]
     Indication: RHEUMATOID ARTHRITIS
     Route: 042
     Dates: start: 200901, end: 20120308
  2. ROACTEMRA [Suspect]
     Route: 042
     Dates: start: 20111214
  3. ROACTEMRA [Suspect]
     Route: 042
     Dates: start: 20120112
  4. ROACTEMRA [Suspect]
     Route: 042
     Dates: start: 20120203
  5. ROACTEMRA [Suspect]
     Route: 042
     Dates: start: 20120308
  6. ROACTEMRA [Suspect]
     Route: 042
     Dates: start: 20120329
  7. CORTANCYL [Suspect]
     Indication: RHEUMATOID ARTHRITIS
     Route: 048
     Dates: end: 20120330
  8. METOJECT [Suspect]
     Indication: RHEUMATOID ARTHRITIS
     Route: 065
  9. METHOTREXATE [Concomitant]
     Route: 048
  10. TAZOCILLINE [Concomitant]
     Route: 065
     Dates: start: 20120419, end: 20120505
  11. SPECIAFOLDINE [Concomitant]
  12. LYRICA [Concomitant]
  13. MICARDIS [Concomitant]
  14. TAHOR [Concomitant]
  15. IXPRIM [Concomitant]

REACTIONS (5)
  - Gastrointestinal perforation [Recovered/Resolved with Sequelae]
  - Septic shock [Recovered/Resolved with Sequelae]
  - Aspergillus infection [Unknown]
  - Pneumocystis jirovecii pneumonia [Unknown]
  - Encephalitis [Unknown]
